FAERS Safety Report 10551765 (Version 1)
Quarter: 2014Q4

REPORT INFORMATION
  Report Type: Spontaneous
  Country: US (occurrence: None)
  Receive Date: 20141028
  Receipt Date: 20141028
  Transmission Date: 20150529
  Serious: No
  Sender: FDA-Public Use
  Company Number: None

PATIENT
  Age: 61 Year
  Sex: Male
  Weight: 109 kg

DRUGS (2)
  1. ELOXATIN [Suspect]
     Active Substance: OXALIPLATIN
  2. 5-FLUOROURACIL (5-FU) [Suspect]
     Active Substance: FLUOROURACIL

REACTIONS (6)
  - Dyspnoea [None]
  - Vomiting [None]
  - Nausea [None]
  - Chest pain [None]
  - Acute myocardial infarction [None]
  - Thrombosis in device [None]

NARRATIVE: CASE EVENT DATE: 20141016
